FAERS Safety Report 5852632-1 (Version None)
Quarter: 2008Q3

REPORT INFORMATION
  Report Type: 
  Country: None (occurrence: None)
  Receive Date: 20080821
  Receipt Date: 20080818
  Transmission Date: 20090109
  Serious: Yes (Death, Life-Threatening, Hospitalization)
  Sender: FDA-Public Use
  Company Number: B0481935B

PATIENT
  Age: 72 Year
  Sex: Male

DRUGS (5)
  1. FLOLAN [Suspect]
     Indication: PULMONARY ARTERIAL HYPERTENSION
     Route: 042
     Dates: start: 20041215, end: 20070928
  2. DOBUTAMINE HCL [Concomitant]
     Route: 042
  3. BOSENTAN [Concomitant]
     Route: 048
  4. NORADRENALINE [Concomitant]
     Route: 042
  5. FUROSEMIDE [Concomitant]
     Dates: start: 20070909, end: 20070927

REACTIONS (1)
  - HAEMORRHAGIC ANAEMIA [None]
